FAERS Safety Report 15782235 (Version 4)
Quarter: 2019Q1

REPORT INFORMATION
  Report Type: Report from Study
  Country: CA (occurrence: CA)
  Receive Date: 20190102
  Receipt Date: 20190220
  Transmission Date: 20190417
  Serious: Yes (Life-Threatening, Hospitalization)
  Sender: FDA-Public Use
  Company Number: CA-JNJFOC-20181237175

PATIENT
  Age: 81 Year
  Sex: Male

DRUGS (7)
  1. ROSUVASTATIN. [Concomitant]
     Active Substance: ROSUVASTATIN
  2. TAMSULOSIN [Concomitant]
     Active Substance: TAMSULOSIN
  3. ERLEADA [Suspect]
     Active Substance: APALUTAMIDE
     Indication: HORMONE-REFRACTORY PROSTATE CANCER
     Dosage: STRENGTH = 60 MG
     Route: 048
     Dates: start: 20181211
  4. NOVORAPID [Concomitant]
     Active Substance: INSULIN ASPART
  5. ERLEADA [Suspect]
     Active Substance: APALUTAMIDE
     Indication: HORMONE-REFRACTORY PROSTATE CANCER
     Route: 048
     Dates: start: 20190214
  6. ERLEADA [Suspect]
     Active Substance: APALUTAMIDE
     Indication: HORMONE-REFRACTORY PROSTATE CANCER
     Route: 048
     Dates: start: 20190215
  7. LANTUS [Concomitant]
     Active Substance: INSULIN GLARGINE

REACTIONS (10)
  - Asthenia [Unknown]
  - Vomiting [Unknown]
  - Decreased appetite [Unknown]
  - Blood glucose increased [Unknown]
  - Abdominal discomfort [Unknown]
  - Fatigue [Unknown]
  - Nausea [Unknown]
  - Weight decreased [Unknown]
  - Gait inability [Unknown]
  - Diabetic ketoacidosis [Not Recovered/Not Resolved]

NARRATIVE: CASE EVENT DATE: 201812
